FAERS Safety Report 19992377 (Version 2)
Quarter: 2021Q4

REPORT INFORMATION
  Report Type: Spontaneous
  Country: US (occurrence: US)
  Receive Date: 20211025
  Receipt Date: 20211108
  Transmission Date: 20220303
  Serious: No
  Sender: FDA-Public Use
  Company Number: US-BAYER-2021A236166

PATIENT
  Age: 69 Year
  Sex: Male

DRUGS (2)
  1. MIRALAX [Suspect]
     Active Substance: POLYETHYLENE GLYCOL 3350
     Indication: Diverticulitis
     Dosage: 1 DF, QD
  2. PLANTAGO MAJOR LEAF [Suspect]
     Active Substance: PLANTAGO MAJOR LEAF
     Indication: Diverticulitis
     Dosage: 1 TABLESPOON, QD

REACTIONS (2)
  - Glycosylated haemoglobin increased [Unknown]
  - Off label use [Unknown]
